FAERS Safety Report 24733900 (Version 2)
Quarter: 2024Q4

REPORT INFORMATION
  Report Type: Report from Study
  Country: US (occurrence: US)
  Receive Date: 20241214
  Receipt Date: 20241224
  Transmission Date: 20250115
  Serious: Yes (Other)
  Sender: UCB
  Company Number: US-UCBSA-2024064327

PATIENT
  Age: 8 Year
  Sex: Female
  Weight: 18.6 kg

DRUGS (1)
  1. FINTEPLA [Suspect]
     Active Substance: FENFLURAMINE
     Indication: Lennox-Gastaut syndrome
     Dosage: 1.5 MILLILITER, 2X/DAY (BID)

REACTIONS (2)
  - Mitral valve incompetence [Unknown]
  - Aortic dilatation [Unknown]

NARRATIVE: CASE EVENT DATE: 20241126
